FAERS Safety Report 4777842-6 (Version None)
Quarter: 2005Q3

REPORT INFORMATION
  Report Type: 
  Country: None (occurrence: None)
  Receive Date: 20050915
  Receipt Date: 20050831
  Transmission Date: 20060218
  Serious: Yes (Life-Threatening, Hospitalization, Other)
  Sender: FDA-Public Use
  Company Number: JP_050406405

PATIENT
  Age: 55 Year
  Sex: Female
  Weight: 45 kg

DRUGS (14)
  1. ZYPREXA [Suspect]
     Indication: SCHIZOPHRENIA
     Dosage: 10 MG/1 DAY
     Dates: start: 20040706, end: 20040809
  2. CHLORPROMAZINE [Concomitant]
  3. HALOPERIDOL [Concomitant]
  4. TASMOLIN(BIPERIDEN) [Concomitant]
  5. PYRETHIA (PROMETHAZINE HYDROCHLORIDE) [Concomitant]
  6. HIRNAMIN (LEVOMEPROMAZINE) [Concomitant]
  7. VITAMIN A [Concomitant]
  8. TEGRETOL (CARBAMAZEPINE RIVOPHARM) [Concomitant]
  9. NITRAZEPAM [Concomitant]
  10. CHLORPROMAZINE HCL [Concomitant]
  11. LINTON (HALOPERIDOL  /00027401/) [Concomitant]
  12. LEVOTOMIN ILEVOMEPROMAZINE MALEATE) [Concomitant]
  13. SENNOSIDE 9SENNOSIDE A+B CALCIUM) [Concomitant]
  14. PSYCHOTERAPY [Concomitant]

REACTIONS (15)
  - ABDOMINAL DISTENSION [None]
  - BLADDER HYPERTROPHY [None]
  - BLOOD PRESSURE SYSTOLIC DECREASED [None]
  - CACHEXIA [None]
  - CONTUSION [None]
  - DEPRESSED LEVEL OF CONSCIOUSNESS [None]
  - HEPATIC NEOPLASM MALIGNANT [None]
  - HYPERGLYCAEMIA [None]
  - INCONTINENCE [None]
  - NEUROGENIC BLADDER [None]
  - PULMONARY EMBOLISM [None]
  - PULMONARY HYPERTENSION [None]
  - RESPIRATORY FAILURE [None]
  - VENOUS THROMBOSIS [None]
  - WEIGHT DECREASED [None]
